FAERS Safety Report 17225223 (Version 6)
Quarter: 2020Q1

REPORT INFORMATION
  Report Type: Report from Study
  Country: US (occurrence: US)
  Receive Date: 20200102
  Receipt Date: 20200225
  Transmission Date: 20200409
  Serious: Yes (Hospitalization)
  Sender: FDA-Public Use
  Company Number: US-JNJFOC-20191241575

PATIENT
  Age: 43 Year
  Sex: Female
  Weight: 78.3 kg

DRUGS (1)
  1. GUSELKUMAB [Suspect]
     Active Substance: GUSELKUMAB
     Indication: CLINICAL TRIAL PARTICIPANT
     Dosage: 2 X 1ML SINGLE SUBCUTANEOUS INJECTION TO EACH THIGH?MEDICATION NUMBER 11969, 11954
     Route: 058
     Dates: start: 20191202, end: 20191202

REACTIONS (3)
  - Tubo-ovarian abscess [Recovered/Resolved]
  - Postoperative ileus [Recovered/Resolved]
  - Sepsis [Recovered/Resolved]

NARRATIVE: CASE EVENT DATE: 20191219
